FAERS Safety Report 7656945-2 (Version None)
Quarter: 2011Q3

REPORT INFORMATION
  Report Type: 
  Country: None (occurrence: None)
  Receive Date: 20110802
  Receipt Date: 20110711
  Transmission Date: 20111222
  Serious: Yes (Hospitalization)
  Sender: FDA-Public Use
  Company Number: 2135225-2011-00076

PATIENT
  Age: 68 Year
  Sex: Male

DRUGS (2)
  1. WYSTAL (CEFOPERAZONE SODIUM) [Concomitant]
  2. AETHOXYSKLEROL [Suspect]
     Indication: OFF LABEL USE
     Dosage: {10 ML,
     Dates: start: 20110706

REACTIONS (1)
  - ANAPHYLACTIC SHOCK [None]
